FAERS Safety Report 8540028-3 (Version None)
Quarter: 2012Q2

REPORT INFORMATION
  Report Type: 
  Country: None (occurrence: None)
  Receive Date: 20120413
  Receipt Date: 20090413
  Transmission Date: 20120825
  Serious: Yes (Other)
  Sender: FDA-Public Use
  Company Number: PHEH2009US03631

PATIENT
  Sex: Male

DRUGS (1)
  1. AREDIA [Suspect]

REACTIONS (6)
  - ANHEDONIA [None]
  - PAIN [None]
  - INJURY [None]
  - ANXIETY [None]
  - OSTEONECROSIS [None]
  - DISABILITY [None]
